FAERS Safety Report 9704540 (Version 1)
Quarter: 2020Q3

REPORT INFORMATION
  Report Type: Report from Study
  Country: FI (occurrence: FI)
  Receive Date: 20131122
  Receipt Date: 20131122
  Transmission Date: 20201104
  Serious: Yes (Other)
  Sender: FDA-Public Use
  Company Number: FI-ROCHE-1306537

PATIENT
  Age: 55 Year
  Sex: Female

DRUGS (1)
  1. IBANDRONIC ACID. [Suspect]
     Active Substance: IBANDRONIC ACID
     Indication: OSTEOPOROSIS
     Route: 065
     Dates: end: 2009

REACTIONS (3)
  - Low turnover osteopathy [Unknown]
  - Atypical femur fracture [Recovering/Resolving]
  - Fracture delayed union [Recovering/Resolving]

NARRATIVE: CASE EVENT DATE: 2006
